FAERS Safety Report 7772031-5 (Version None)
Quarter: 2011Q3

REPORT INFORMATION
  Report Type: 
  Country: None (occurrence: None)
  Receive Date: 20110922
  Receipt Date: 20110526
  Transmission Date: 20111222
  Serious: No
  Sender: FDA-Public Use
  Company Number: US-ASTRAZENECA-2011SE33003

PATIENT
  Age: 35 Year
  Sex: Female
  Weight: 94.3 kg

DRUGS (7)
  1. SEROQUEL XR [Suspect]
     Indication: BIPOLAR DISORDER
     Route: 048
     Dates: start: 20100501
  2. SEROQUEL XR [Suspect]
     Indication: PANIC ATTACK
     Route: 048
     Dates: start: 20100501
  3. SEROQUEL XR [Suspect]
     Indication: ANXIETY
     Route: 048
     Dates: start: 20100501
  4. TRAZODONE HYDROCHLORIDE [Concomitant]
  5. LAMICTAL [Concomitant]
  6. CYMBALTA [Concomitant]
  7. XANAX [Concomitant]

REACTIONS (6)
  - DRUG DOSE OMISSION [None]
  - BIPOLAR DISORDER [None]
  - BIPOLAR I DISORDER [None]
  - CRYING [None]
  - SOCIAL AVOIDANT BEHAVIOUR [None]
  - OFF LABEL USE [None]
